FAERS Safety Report 8074133-5 (Version None)
Quarter: 2012Q1

REPORT INFORMATION
  Report Type: 
  Country: None (occurrence: None)
  Receive Date: 20120119
  Receipt Date: 20120111
  Transmission Date: 20120608
  Serious: Yes (Hospitalization)
  Sender: FDA-Public Use
  Company Number: 2011SP047592

PATIENT
  Age: 49 Year
  Sex: Male

DRUGS (14)
  1. KEPPRA [Concomitant]
  2. OSTEOFOS [Concomitant]
  3. TEMODAL [Suspect]
     Indication: GLIOBLASTOMA
     Dosage: 150 MG/M2;QD   : 310 MG
     Dates: start: 20111028, end: 20111102
  4. TEMODAL [Suspect]
     Indication: GLIOBLASTOMA
     Dosage: 150 MG/M2;QD   : 310 MG
     Dates: start: 20110905
  5. DEXAMETHASONE [Concomitant]
  6. ZOPITAN [Concomitant]
  7. ACETAMINOPHEN [Concomitant]
  8. QUESTRAN [Concomitant]
  9. IMODIUM [Concomitant]
  10. OXYCONTIN [Concomitant]
  11. NEO CYTAMEN [Concomitant]
  12. FOLIC ACID [Concomitant]
  13. OMEPRAZOLE [Concomitant]
  14. MOTILIUM [Concomitant]

REACTIONS (4)
  - BACK PAIN [None]
  - FALL [None]
  - VOMITING [None]
  - MUSCLE STRAIN [None]
